FAERS Safety Report 7545090-2 (Version None)
Quarter: 2011Q2

REPORT INFORMATION
  Report Type: 
  Country: None (occurrence: None)
  Receive Date: 20110610
  Receipt Date: 20110610
  Transmission Date: 20111010
  Serious: Yes (Other)
  Sender: FDA-Public Use
  Company Number: None

PATIENT
  Sex: Male
  Weight: 115.6672 kg

DRUGS (1)
  1. CHANTIX [Suspect]
     Dosage: 1 MG 2X DAILY ORAL
     Route: 048
     Dates: start: 20110507, end: 20110518

REACTIONS (2)
  - POLLAKIURIA [None]
  - BLADDER DISORDER [None]
